FAERS Safety Report 9846303 (Version 1)
Quarter: 2014Q1

REPORT INFORMATION
  Report Type: Spontaneous
  Country: CH (occurrence: CH)
  Receive Date: 20140127
  Receipt Date: 20140127
  Transmission Date: 20141002
  Serious: Yes (Death, Life-Threatening, Hospitalization)
  Sender: FDA-Public Use
  Company Number: CH-TEVA-457351ISR

PATIENT
  Age: 82 Year
  Sex: Male
  Weight: 65 kg

DRUGS (9)
  1. CO-ENATEC [Suspect]
     Indication: CARDIAC FAILURE
     Route: 048
     Dates: start: 20131202, end: 20131206
  2. CO-ENATEC [Suspect]
     Dosage: 1 DF = 20 MG ENALAPRIL/ 12.5 MG HYDROCHLOROTHIAZIDE, STARTED AND INTERRUPTED ON UNSPECIFIED DATES
     Route: 048
  3. TOREM [Suspect]
     Indication: CARDIAC FAILURE
     Route: 048
     Dates: start: 20131202, end: 20131206
  4. TOREM [Suspect]
     Dosage: 7.5 MILLIGRAM DAILY; 1.5 TABLETS/DAY
     Route: 048
     Dates: end: 201312
  5. LASIX [Suspect]
     Indication: CARDIAC FAILURE
     Dosage: 40 MILLIGRAM DAILY;
     Route: 048
     Dates: start: 20131203, end: 20131206
  6. TRANSIPEG FORTE POWDER [Suspect]
     Route: 048
  7. PLAVIX [Concomitant]
     Indication: CEREBROVASCULAR DISORDER
     Dosage: 75 DOSAGE FORMS DAILY;
     Route: 048
     Dates: start: 201311
  8. CLEXANE 100 MG/ML [Concomitant]
     Dosage: 40 DOSAGE FORMS DAILY;
     Route: 058
     Dates: start: 201311
  9. BELOK ZOK RETARD [Concomitant]
     Dosage: 25 MILLIGRAM DAILY;
     Route: 048

REACTIONS (10)
  - Pneumonitis [Fatal]
  - Sepsis [Fatal]
  - Accidental overdose [Recovered/Resolved]
  - Electrolyte imbalance [Recovered/Resolved]
  - Hypokalaemia [Recovered/Resolved]
  - Hypernatraemia [Recovered/Resolved]
  - Dehydration [Recovered/Resolved]
  - Renal failure chronic [Recovering/Resolving]
  - Arrhythmia [Unknown]
  - Bradycardia [Unknown]
